FAERS Safety Report 6434163-3 (Version None)
Quarter: 2009Q4

REPORT INFORMATION
  Report Type: 
  Country: None (occurrence: None)
  Receive Date: 20091110
  Receipt Date: 20090407
  Transmission Date: 20100525
  Serious: No
  Sender: FDA-Public Use
  Company Number: US-ASTRAZENECA-2009SE08589

PATIENT
  Sex: Female

DRUGS (1)
  1. PRILOSEC OTC [Suspect]
     Route: 048

REACTIONS (3)
  - INCORRECT DRUG ADMINISTRATION DURATION [None]
  - PRURITUS [None]
  - RASH MACULAR [None]
